FAERS Safety Report 7500485-8 (Version None)
Quarter: 2011Q2

REPORT INFORMATION
  Report Type: 
  Country: None (occurrence: None)
  Receive Date: 20110524
  Receipt Date: 20110426
  Transmission Date: 20111010
  Serious: No
  Sender: FDA-Public Use
  Company Number: US-BRISTOL-MYERS SQUIBB COMPANY-15697709

PATIENT
  Sex: Male

DRUGS (3)
  1. METFORMIN HCL [Suspect]
  2. ACTOS [Suspect]
  3. ONGLYZA [Suspect]

REACTIONS (2)
  - BLOOD GLUCOSE ABNORMAL [None]
  - WEIGHT INCREASED [None]
